FAERS Safety Report 9019522 (Version 1)
Quarter: 2013Q1

REPORT INFORMATION
  Report Type: Report from Study
  Country: US (occurrence: US)
  Receive Date: 20130118
  Receipt Date: 20130118
  Transmission Date: 20140127
  Serious: Yes (Hospitalization, Other)
  Sender: FDA-Public Use
  Company Number: US-TEVA-380970USA

PATIENT
  Age: 57 None
  Sex: Female

DRUGS (1)
  1. CLOZAPINE [Suspect]
     Indication: BIPOLAR DISORDER
     Route: 048

REACTIONS (5)
  - Urinary tract infection [Unknown]
  - Hypotension [Unknown]
  - Hypoglycaemia [Unknown]
  - Osteomyelitis [Unknown]
  - Cellulitis [Unknown]
